FAERS Safety Report 10643829 (Version 3)
Quarter: 2014Q4

REPORT INFORMATION
  Report Type: Spontaneous
  Country: US (occurrence: US)
  Receive Date: 20141210
  Receipt Date: 20141219
  Transmission Date: 20150529
  Serious: Yes (Hospitalization, Other)
  Sender: FDA-Public Use
  Company Number: US-BAYER-2014-181848

PATIENT
  Age: 62 Year
  Sex: Male
  Weight: 111 kg

DRUGS (4)
  1. LOTREL [Concomitant]
     Active Substance: AMLODIPINE BESYLATE\BENAZEPRIL HYDROCHLORIDE
  2. ASPIRIN. [Interacting]
     Active Substance: ASPIRIN
     Dosage: UNK
  3. ALEVE [Suspect]
     Active Substance: NAPROXEN SODIUM
     Indication: MYALGIA
     Dosage: 1 DF, BID
     Dates: start: 201410, end: 20141202
  4. CRESTOR [Concomitant]
     Active Substance: ROSUVASTATIN CALCIUM

REACTIONS (3)
  - Small intestinal haemorrhage [Recovered/Resolved]
  - Incorrect drug administration duration [None]
  - Melaena [Recovered/Resolved]

NARRATIVE: CASE EVENT DATE: 20141124
